FAERS Safety Report 8094488-5 (Version None)
Quarter: 2012Q1

REPORT INFORMATION
  Report Type: 
  Country: None (occurrence: None)
  Receive Date: 20120130
  Receipt Date: 20120117
  Transmission Date: 20120608
  Serious: Yes (Other)
  Sender: FDA-Public Use
  Company Number: US-ELI_LILLY_AND_COMPANY-US201201005223

PATIENT
  Sex: Female

DRUGS (13)
  1. ALPRAZOLAM [Concomitant]
  2. ASPIRIN                                 /USA/ [Concomitant]
  3. CYMBALTA [Suspect]
     Indication: DEPRESSION
     Dosage: 30 MG, QD
     Dates: start: 20110901
  4. METOPROLOL TARTRATE [Concomitant]
  5. LEVEMIR [Concomitant]
  6. HYDROCHLOROTHIAZIDE [Concomitant]
  7. ZOCOR [Concomitant]
  8. DEXLANSOPRAZOLE [Concomitant]
  9. PLAVIX [Concomitant]
  10. ENALAPRIL [Concomitant]
  11. PAXIL [Concomitant]
  12. METFORMIN HCL [Concomitant]
  13. CYMBALTA [Suspect]
     Dosage: 30 MG, QD
     Dates: start: 20111229, end: 20120110

REACTIONS (6)
  - BLADDER DISORDER [None]
  - INFECTION [None]
  - BACK PAIN [None]
  - DEVICE OCCLUSION [None]
  - RENAL DISORDER [None]
  - URINARY RETENTION [None]
